FAERS Safety Report 8493812-9 (Version None)
Quarter: 2012Q3

REPORT INFORMATION
  Report Type: 
  Country: None (occurrence: None)
  Receive Date: 20120706
  Receipt Date: 20120604
  Transmission Date: 20120928
  Serious: Yes (Death)
  Sender: FDA-Public Use
  Company Number: US-BAXTER-2012BAX007712

PATIENT

DRUGS (5)
  1. LENALIDOMIDE [Suspect]
     Indication: MULTIPLE MYELOMA
  2. DEXAMETHASONE [Suspect]
     Indication: MULTIPLE MYELOMA
  3. BORTEZOMIB [Suspect]
     Indication: MULTIPLE MYELOMA
  4. CYTOXAN [Suspect]
     Indication: MULTIPLE MYELOMA
     Route: 048
  5. BORTEZOMIB [Suspect]

REACTIONS (1)
  - RENAL FAILURE [None]
